FAERS Safety Report 4382326-3 (Version None)
Quarter: 2004Q2

REPORT INFORMATION
  Report Type: 
  Country: None (occurrence: None)
  Receive Date: 20040621
  Receipt Date: 20040621
  Transmission Date: 20050107
  Serious: Yes (Other)
  Sender: FDA-Public Use
  Company Number: None

PATIENT
  Age: 50 Year
  Sex: Female
  Weight: 47.6 kg

DRUGS (11)
  1. PACLITAXEL [Suspect]
     Indication: OVARIAN CANCER
     Dosage: 67 MG, 193 MG INTRAVENOUS; 260 MG INTRAVENOUS
     Route: 042
     Dates: start: 20040420, end: 20040426
  2. PACLITAXEL [Suspect]
     Indication: OVARIAN CANCER
     Dosage: 67 MG, 193 MG INTRAVENOUS; 260 MG INTRAVENOUS
     Route: 042
     Dates: start: 20040517, end: 20040517
  3. DECADRON [Concomitant]
  4. PEPCID [Concomitant]
  5. ZOFRAN [Concomitant]
  6. BENADRYL [Concomitant]
  7. CARBOPLATIN [Concomitant]
  8. PHENERGAN [Concomitant]
  9. ASPIRIN [Concomitant]
  10. CALCIUM [Concomitant]
  11. GLUCOSAMINE [Concomitant]

REACTIONS (5)
  - INFUSION SITE ERYTHEMA [None]
  - PARAESTHESIA [None]
  - PRURITUS [None]
  - RASH ERYTHEMATOUS [None]
  - SKIN BURNING SENSATION [None]
